FAERS Safety Report 21059399 (Version 1)
Quarter: 2022Q3

REPORT INFORMATION
  Report Type: Report from Study
  Country: US (occurrence: US)
  Receive Date: 20220708
  Receipt Date: 20220708
  Transmission Date: 20221027
  Serious: Yes (Death, Hospitalization)
  Sender: FDA-Public Use
  Company Number: US-BAYER-2022A089838

PATIENT
  Age: 80 Year
  Sex: Male
  Weight: 94 kg

DRUGS (2)
  1. ASPIRIN [Suspect]
     Active Substance: ASPIRIN
     Dosage: UNK
  2. CLOPIDOGREL [Suspect]
     Active Substance: CLOPIDOGREL BISULFATE
     Dosage: UNK
     Dates: start: 20210722

REACTIONS (12)
  - Subdural haematoma [Fatal]
  - Respiratory failure [Fatal]
  - Cardiac arrest [Fatal]
  - Acute myocardial infarction [None]
  - Hyponatraemia [None]
  - Head injury [None]
  - Fall [None]
  - Bone pain [None]
  - Arthralgia [None]
  - Ejection fraction decreased [None]
  - Left ventricular dilatation [None]
  - Hypokinesia [None]

NARRATIVE: CASE EVENT DATE: 20210818
